FAERS Safety Report 15849041 (Version 1)
Quarter: 2019Q1

REPORT INFORMATION
  Report Type: Spontaneous
  Country: FR (occurrence: FR)
  Receive Date: 20190121
  Receipt Date: 20190121
  Transmission Date: 20190417
  Serious: Yes (Hospitalization)
  Sender: FDA-Public Use
  Company Number: FR-MYLANLABS-2019M1003815

PATIENT
  Age: 41 Year
  Sex: Male
  Weight: 60 kg

DRUGS (16)
  1. KETOPROFENE MACOPHARMA [Suspect]
     Active Substance: KETOPROFEN
     Indication: ANALGESIC THERAPY
     Dosage: 1 DOSAGE FORM, QD
     Route: 042
     Dates: start: 20180607, end: 20180608
  2. KETAMINE [Suspect]
     Active Substance: KETAMINE
     Indication: ANALGESIC THERAPY
     Dosage: 30 MILLIGRAM, TOTAL
     Route: 042
     Dates: start: 20180607, end: 20180607
  3. DROLEPTAN [Suspect]
     Active Substance: DROPERIDOL
     Indication: PROPHYLAXIS OF NAUSEA AND VOMITING
     Dosage: 1.25 MILLIGRAM, TOTAL
     Route: 042
     Dates: start: 20180607, end: 20180607
  4. FRAGMINE [Suspect]
     Active Substance: DALTEPARIN SODIUM
     Indication: THROMBOSIS PROPHYLAXIS
     Dosage: 1 DOSAGE FORM, QD
     Route: 058
     Dates: start: 20180608, end: 20180608
  5. PROFENID [Suspect]
     Active Substance: KETOPROFEN
     Indication: ANALGESIC THERAPY
     Dosage: 100 MILLIGRAM, QD
     Route: 042
     Dates: start: 20180607, end: 20180607
  6. ACUPAN [Suspect]
     Active Substance: NEFOPAM HYDROCHLORIDE
     Indication: ANALGESIC THERAPY
     Dosage: 20 MILLIGRAM, TOTAL
     Route: 042
     Dates: start: 20180607, end: 20180607
  7. PARACETAMOL [Suspect]
     Active Substance: ACETAMINOPHEN
     Indication: ANALGESIC THERAPY
     Dosage: 1 GRAM, TOTAL
     Route: 042
     Dates: start: 20180607, end: 20180607
  8. SUFENTANIL [Suspect]
     Active Substance: SUFENTANIL
     Indication: ANALGESIC THERAPY
     Dosage: 20 MICROGRAM, TOTAL
     Route: 042
     Dates: start: 20180607, end: 20180607
  9. LOVENOX [Suspect]
     Active Substance: ENOXAPARIN SODIUM
     Indication: THROMBOSIS PROPHYLAXIS
     Dosage: 4000 INTERNATIONAL UNIT, QD
     Route: 058
     Dates: start: 20180607, end: 20180607
  10. PARACETAMOL KABI [Suspect]
     Active Substance: ACETAMINOPHEN
     Indication: ANALGESIC THERAPY
     Dosage: 1 DOSAGE FORM, Q6H
     Route: 042
     Dates: start: 20180607, end: 20180608
  11. MIDAZOLAM [Suspect]
     Active Substance: MIDAZOLAM HYDROCHLORIDE
     Indication: ANAESTHESIA
     Dosage: 2 MILLIGRAM, TOTAL
     Route: 042
     Dates: start: 20180607, end: 20180607
  12. PROPOFOL. [Suspect]
     Active Substance: PROPOFOL
     Indication: ANAESTHESIA
     Dosage: 300 MILLIGRAM, TOTAL
     Route: 042
     Dates: start: 20180607, end: 20180607
  13. NEFOPAM MYLAN 20 MG/2 ML, SOLUTION INJECTABLE [Suspect]
     Active Substance: NEFOPAM HYDROCHLORIDE
     Indication: ANALGESIC THERAPY
     Dosage: 1 DOSAGE FORM, Q6H
     Route: 042
     Dates: start: 20180607, end: 20180608
  14. DEXAMETHASONE. [Suspect]
     Active Substance: DEXAMETHASONE
     Indication: ANALGESIC THERAPY
     Dosage: 8 MILLIGRAM, TOTAL
     Route: 042
     Dates: start: 20180607, end: 20180607
  15. TOPALGIC                           /00599202/ [Suspect]
     Active Substance: TRAMADOL HYDROCHLORIDE
     Indication: ANALGESIC THERAPY
     Dosage: 1 DOSAGE FORM, Q6H
     Route: 042
     Dates: start: 20180607, end: 20180608
  16. TRACRIUM [Suspect]
     Active Substance: ATRACURIUM BESYLATE
     Indication: ANAESTHESIA
     Dosage: 40 MILLIGRAM, TOTAL
     Route: 042
     Dates: start: 20180607, end: 20180607

REACTIONS (1)
  - Haemolytic anaemia [Recovered/Resolved]

NARRATIVE: CASE EVENT DATE: 20180614
